FAERS Safety Report 11585184 (Version 3)
Quarter: 2017Q4

REPORT INFORMATION
  Report Type: Report from Study
  Country: US (occurrence: US)
  Receive Date: 20151001
  Receipt Date: 20171229
  Transmission Date: 20180320
  Serious: Yes (Hospitalization)
  Sender: FDA-Public Use
  Company Number: US-ACTELION-A-NJ2015-124641

PATIENT
  Age: 36 Year
  Sex: Male

DRUGS (11)
  1. PRADAXA [Concomitant]
     Active Substance: DABIGATRAN ETEXILATE MESYLATE
  2. FOLIC ACID. [Concomitant]
     Active Substance: FOLIC ACID
  3. SILDENAFIL. [Concomitant]
     Active Substance: SILDENAFIL
  4. METOPROLOL. [Concomitant]
     Active Substance: METOPROLOL
  5. FLUOXETINE [Concomitant]
     Active Substance: FLUOXETINE HYDROCHLORIDE
  6. PROMETHAZINE [Concomitant]
     Active Substance: PROMETHAZINE\PROMETHAZINE HYDROCHLORIDE
  7. HYDROXYUREA. [Concomitant]
     Active Substance: HYDROXYUREA
  8. JADENU [Concomitant]
     Active Substance: DEFERASIROX
  9. MS CONTIN [Concomitant]
     Active Substance: MORPHINE SULFATE
  10. SEPTRA DS [Concomitant]
     Active Substance: SULFAMETHOXAZOLE\TRIMETHOPRIM
  11. OPSUMIT [Suspect]
     Active Substance: MACITENTAN
     Indication: PULMONARY HYPERTENSION
     Dosage: 10 MG, QD
     Route: 048
     Dates: start: 20151209

REACTIONS (9)
  - Sputum abnormal [Unknown]
  - Dyspnoea [Unknown]
  - Sickle cell anaemia [Unknown]
  - Pain [Unknown]
  - Unresponsive to stimuli [Unknown]
  - Pneumonia [Unknown]
  - Cardiac disorder [Unknown]
  - Respiratory failure [Unknown]
  - Sickle cell anaemia with crisis [Unknown]

NARRATIVE: CASE EVENT DATE: 20170726
